FAERS Safety Report 4816998-3 (Version None)
Quarter: 2005Q4

REPORT INFORMATION
  Report Type: 
  Country: None (occurrence: None)
  Receive Date: 20051101
  Receipt Date: 20051028
  Transmission Date: 20060501
  Serious: Yes (Other)
  Sender: FDA-Public Use
  Company Number: US-GLAXOSMITHKLINE-A0580082A

PATIENT
  Age: 39 Year
  Sex: Male

DRUGS (1)
  1. PAXIL [Suspect]
     Indication: DEPRESSION
     Dosage: 10MG PER DAY
     Route: 048
     Dates: start: 20050916, end: 20050919

REACTIONS (11)
  - ANOREXIA [None]
  - ANXIETY [None]
  - CRYING [None]
  - DRUG WITHDRAWAL SYNDROME [None]
  - FEELING HOT [None]
  - HEADACHE [None]
  - INSOMNIA [None]
  - NAUSEA [None]
  - PARAESTHESIA [None]
  - SUICIDAL IDEATION [None]
  - WEIGHT DECREASED [None]
